FAERS Safety Report 4985179-5 (Version None)
Quarter: 2006Q2

REPORT INFORMATION
  Report Type: 
  Country: None (occurrence: None)
  Receive Date: 20060427
  Receipt Date: 20051205
  Transmission Date: 20061013
  Serious: Yes (Hospitalization, Other)
  Sender: FDA-Public Use
  Company Number: US-MERCK-0512USA00705

PATIENT
  Sex: Female
  Weight: 67 kg

DRUGS (9)
  1. VIOXX [Suspect]
     Indication: ARTHRITIS
     Route: 048
     Dates: start: 19990101, end: 20001201
  2. VIOXX [Suspect]
     Route: 048
     Dates: start: 19990101, end: 20001201
  3. VIOXX [Suspect]
     Indication: ARTHRALGIA
     Route: 048
     Dates: start: 19990101, end: 20001201
  4. VIOXX [Suspect]
     Route: 048
     Dates: start: 19990101, end: 20001201
  5. VIOXX [Suspect]
     Route: 048
     Dates: start: 19990101, end: 20001201
  6. VIOXX [Suspect]
     Route: 048
     Dates: start: 19990101, end: 20001201
  7. VIOXX [Suspect]
     Route: 048
     Dates: start: 19990101, end: 20001201
  8. VIOXX [Suspect]
     Route: 048
     Dates: start: 19990101, end: 20001201
  9. TYLENOL (CAPLET) [Concomitant]
     Route: 065

REACTIONS (3)
  - BLOOD GLUCOSE INCREASED [None]
  - CARDIAC DISORDER [None]
  - MYOCARDIAL INFARCTION [None]
